FAERS Safety Report 7314455-6 (Version None)
Quarter: 2011Q1

REPORT INFORMATION
  Report Type: 
  Country: None (occurrence: None)
  Receive Date: 20110225
  Receipt Date: 20100830
  Transmission Date: 20110831
  Serious: No
  Sender: FDA-Public Use
  Company Number: US-MYLANLABS-2010S1016046

PATIENT
  Age: 25 Year
  Sex: Female

DRUGS (2)
  1. AMNESTEEM [Suspect]
     Indication: ACNE
     Dates: start: 20100401, end: 20100501
  2. AMNESTEEM [Suspect]
     Dates: start: 20100601, end: 20100601

REACTIONS (4)
  - HEART RATE INCREASED [None]
  - MUSCLE SPASMS [None]
  - PALPITATIONS [None]
  - ANXIETY [None]
